FAERS Safety Report 9563838 (Version 1)
Quarter: 2013Q3

REPORT INFORMATION
  Report Type: Spontaneous
  Country: US (occurrence: None)
  Receive Date: 20130926
  Receipt Date: 20130926
  Transmission Date: 20140515
  Serious: Yes (Disabling)
  Sender: FDA-Public Use
  Company Number: None

PATIENT
  Age: 78 Year
  Sex: Female
  Weight: 52.16 kg

DRUGS (1)
  1. CHANTIX [Suspect]
     Indication: EX-TOBACCO USER
     Dosage: 1 PILL
     Route: 048

REACTIONS (7)
  - Nausea [None]
  - Aphagia [None]
  - Somnolence [None]
  - Somnolence [None]
  - Impaired driving ability [None]
  - Sleep disorder [None]
  - Nightmare [None]
